FAERS Safety Report 22602247 (Version 2)
Quarter: 2023Q2

REPORT INFORMATION
  Report Type: Spontaneous
  Country: CA (occurrence: CA)
  Receive Date: 20230614
  Receipt Date: 20230627
  Transmission Date: 20230722
  Serious: Yes (Hospitalization, Other)
  Sender: FDA-Public Use
  Company Number: CA-PFIZER INC-202201364662

PATIENT
  Age: 64 Year
  Sex: Male

DRUGS (2)
  1. RUXIENCE [Suspect]
     Active Substance: RITUXIMAB-PVVR
     Dosage: 500 MG (SUPPOSED TO RECEIVE 1G Q 6 MONTHS), CYCLIC (ONCE Q 6 MONTHS)
     Route: 042
     Dates: start: 20221208
  2. RUXIENCE [Suspect]
     Active Substance: RITUXIMAB-PVVR
     Dosage: 1 G (EVERY 6 MONTHS)
     Route: 042
     Dates: start: 20221208

REACTIONS (3)
  - Pneumothorax [Recovering/Resolving]
  - Off label use [Unknown]
  - Incorrect dose administered [Unknown]

NARRATIVE: CASE EVENT DATE: 20221208
